FAERS Safety Report 5092398-9 (Version None)
Quarter: 2006Q3

REPORT INFORMATION
  Report Type: 
  Country: None (occurrence: None)
  Receive Date: 20060825
  Receipt Date: 20060817
  Transmission Date: 20061208
  Serious: Yes (Hospitalization)
  Sender: FDA-Public Use
  Company Number: 2006-08-1222

PATIENT
  Age: 52 Year
  Sex: Female
  Weight: 69.8539 kg

DRUGS (5)
  1. PEG-INTRON [Suspect]
     Indication: HEPATITIS C
     Dosage: 0.33 ML QWK SUBCUTANEOUS
     Route: 058
     Dates: start: 20060320, end: 20060816
  2. REBETOL [Suspect]
     Indication: HEPATITIS C
     Dosage: 1000 MG QD ORAL
     Route: 048
     Dates: start: 20060320, end: 20060816
  3. WELLBUTRIN [Concomitant]
  4. MULTIVITAMIN [Concomitant]
  5. SPIRONOLACTONE [Concomitant]

REACTIONS (2)
  - EYE PAIN [None]
  - RETINAL DETACHMENT [None]
